FAERS Safety Report 6792636-8 (Version None)
Quarter: 2010Q2

REPORT INFORMATION
  Report Type: 
  Country: None (occurrence: None)
  Receive Date: 20100624
  Receipt Date: 20080830
  Transmission Date: 20101027
  Serious: No
  Sender: FDA-Public Use
  Company Number: US-PFIZER INC-2008073568

PATIENT
  Sex: Male
  Weight: 86.363 kg

DRUGS (9)
  1. XALATAN [Suspect]
  2. COSOPT [Suspect]
     Dates: start: 20080201
  3. GLIPIZIDE [Concomitant]
  4. ACTOS [Concomitant]
  5. LISINOPRIL [Concomitant]
  6. HYDROCHLOROTHIAZIDE [Concomitant]
  7. LEVOXYL [Concomitant]
  8. MULTI-VITAMINS [Concomitant]
  9. ALPHAGAN [Concomitant]

REACTIONS (3)
  - EYE IRRITATION [None]
  - EYE PAIN [None]
  - OCULAR HYPERAEMIA [None]
